FAERS Safety Report 9819425 (Version 1)
Quarter: 2014Q1

REPORT INFORMATION
  Report Type: Spontaneous
  Country: US (occurrence: US)
  Receive Date: 20140115
  Receipt Date: 20140115
  Transmission Date: 20141002
  Serious: No
  Sender: FDA-Public Use
  Company Number: US-ENDO PHARMACEUTICALS INC.-HCDA20130119

PATIENT
  Sex: Male
  Weight: 61.29 kg

DRUGS (8)
  1. HYDROCODONE BITARTRATE / ACETAMINOPHEN 10MG/325MG [Suspect]
     Indication: BACK PAIN
     Dosage: 60/1950 MG
     Route: 048
     Dates: start: 201301, end: 20130606
  2. HYDROCODONE BITARTRATE / ACETAMINOPHEN 10MG/325MG [Suspect]
     Indication: MIGRAINE
  3. NEXIUM [Concomitant]
     Indication: GASTRIC DISORDER
     Dosage: UNKNOWN
     Route: 065
  4. AMBIEN [Concomitant]
     Indication: INSOMNIA
     Route: 048
  5. OPANA ER 40MG [Concomitant]
     Indication: BACK PAIN
     Route: 048
     Dates: end: 20130110
  6. OPANA ER 40MG [Concomitant]
     Indication: MIGRAINE
  7. OPANA ER [Concomitant]
     Indication: BACK PAIN
     Dosage: UNKNOWN
     Route: 048
  8. OPANA ER [Concomitant]
     Indication: MIGRAINE

REACTIONS (3)
  - Haemoptysis [Unknown]
  - Tooth fracture [Unknown]
  - Drug ineffective [Unknown]
